FAERS Safety Report 8190707-5 (Version None)
Quarter: 2012Q1

REPORT INFORMATION
  Report Type: 
  Country: None (occurrence: None)
  Receive Date: 20120307
  Receipt Date: 20120305
  Transmission Date: 20120608
  Serious: Yes (Hospitalization, Other)
  Sender: FDA-Public Use
  Company Number: US-BAYER-201039465NA

PATIENT
  Age: 62 Year
  Sex: Female

DRUGS (3)
  1. NEXAVAR [Suspect]
     Dosage: 200 MG, BID
     Route: 048
     Dates: start: 20101120, end: 20110523
  2. NEXAVAR [Suspect]
     Dosage: 200 MG DAILY, ALTERNATING WITH 200 MG 2 TIMES PER DAY
     Route: 048
     Dates: start: 20110528
  3. NEXAVAR [Suspect]
     Indication: THYROID CANCER
     Dosage: 200 MG, BID
     Route: 048
     Dates: start: 20060101, end: 20060615

REACTIONS (40)
  - GAIT DISTURBANCE [None]
  - CONSTIPATION [None]
  - FACIAL PAIN [None]
  - BACK PAIN [None]
  - ERUCTATION [None]
  - FLATULENCE [None]
  - HYPERKERATOSIS [None]
  - PAIN IN EXTREMITY [None]
  - VULVOVAGINAL DISCOMFORT [None]
  - NAUSEA [None]
  - THYROID CANCER METASTATIC [None]
  - DECREASED APPETITE [None]
  - ALOPECIA [None]
  - LARYNGITIS [None]
  - SWELLING FACE [None]
  - PRURITUS [None]
  - RASH [None]
  - WEIGHT DECREASED [None]
  - SECRETION DISCHARGE [None]
  - GASTRITIS [None]
  - GLOSSODYNIA [None]
  - SKIN EXFOLIATION [None]
  - TOOTH INFECTION [None]
  - PARAESTHESIA [None]
  - BLOOD PRESSURE INCREASED [None]
  - DRY SKIN [None]
  - PYREXIA [None]
  - HYPERAESTHESIA [None]
  - FLUSHING [None]
  - DIVERTICULUM [None]
  - ORAL PAIN [None]
  - DIARRHOEA [None]
  - DEVICE FAILURE [None]
  - ABDOMINAL PAIN UPPER [None]
  - BLISTER [None]
  - SALIVARY HYPERSECRETION [None]
  - INSOMNIA [None]
  - DIZZINESS [None]
  - TOOTH DISORDER [None]
  - HYPOAESTHESIA [None]
